FAERS Safety Report 8366160-5 (Version None)
Quarter: 2012Q2

REPORT INFORMATION
  Report Type: 
  Country: None (occurrence: None)
  Receive Date: 20120515
  Receipt Date: 20120502
  Transmission Date: 20120825
  Serious: Yes (Other)
  Sender: FDA-Public Use
  Company Number: 2012MA005989

PATIENT
  Age: 76 Year
  Sex: Male

DRUGS (4)
  1. BISOPROLOL FUMARATE [Concomitant]
  2. SODIUM CHLORIDE [Concomitant]
  3. GEMCITABINE HYDROCHLORIDE [Suspect]
     Indication: NON-SMALL CELL LUNG CANCER
     Dosage: 1600 MG, IV
     Route: 042
     Dates: start: 20120313
  4. WARFARIN [Concomitant]

REACTIONS (1)
  - FEELING DRUNK [None]
